FAERS Safety Report 8139316-4 (Version None)
Quarter: 2012Q1

REPORT INFORMATION
  Report Type: 
  Country: None (occurrence: None)
  Receive Date: 20120215
  Receipt Date: 20120213
  Transmission Date: 20120608
  Serious: Yes (Death, Other)
  Sender: FDA-Public Use
  Company Number: PHHY2012JP012307

PATIENT
  Age: 9 Year
  Sex: Male

DRUGS (6)
  1. RADIOTHERAPY [Suspect]
     Indication: YOLK SAC TUMOUR SITE UNSPECIFIED
  2. CARBOPLATIN [Suspect]
     Indication: NONGERMINOMATOUS GERM CELL TUMOUR OF THE CNS
     Dosage: FIRST COURSE: 20 MG/M2,
  3. ETOPOSIDE [Suspect]
     Indication: NONGERMINOMATOUS GERM CELL TUMOUR OF THE CNS
     Dosage: FIRST COURSE 60 MG/M2,
  4. RADIOTHERAPY [Suspect]
     Indication: NONGERMINOMATOUS GERM CELL TUMOUR OF THE CNS
     Dosage: LOCAL 40 GY PLUS LOCAL 20 GY
  5. CARBOPLATIN [Suspect]
     Indication: YOLK SAC TUMOUR SITE UNSPECIFIED
     Dosage: SECOND COURSE: 75% OF 20 MG/M2,
  6. ETOPOSIDE [Suspect]
     Indication: YOLK SAC TUMOUR SITE UNSPECIFIED
     Dosage: SECOND COURSE: 75% OF 60 MG/M2,

REACTIONS (2)
  - BONE MARROW FAILURE [None]
  - GLIOBLASTOMA [None]
